FAERS Safety Report 7971671-8 (Version None)
Quarter: 2011Q4

REPORT INFORMATION
  Report Type: 
  Country: None (occurrence: None)
  Receive Date: 20111212
  Receipt Date: 20111201
  Transmission Date: 20120403
  Serious: Yes (Life-Threatening, Hospitalization, Disabling)
  Sender: FDA-Public Use
  Company Number: DE-TEVA-311946GER

PATIENT
  Sex: Male
  Weight: 25.5 kg

DRUGS (4)
  1. ETOPOSIDE [Suspect]
     Indication: MEDULLOBLASTOMA
     Dosage: 100 MG/M2;
     Route: 042
     Dates: start: 20111116
  2. ETOPOSIDE [Suspect]
     Indication: METASTASES TO MENINGES
  3. CARBOPLATIN [Suspect]
     Indication: METASTASES TO MENINGES
  4. CARBOPLATIN [Suspect]
     Indication: MEDULLOBLASTOMA
     Dosage: 200 MG/M2;
     Route: 042
     Dates: start: 20111116

REACTIONS (4)
  - DEPRESSED LEVEL OF CONSCIOUSNESS [None]
  - INAPPROPRIATE ANTIDIURETIC HORMONE SECRETION [None]
  - BRAIN OEDEMA [None]
  - HYDROCEPHALUS [None]
